FAERS Safety Report 7287838-0 (Version None)
Quarter: 2011Q1

REPORT INFORMATION
  Report Type: 
  Country: None (occurrence: None)
  Receive Date: 20110211
  Receipt Date: 20110207
  Transmission Date: 20110831
  Serious: No
  Sender: FDA-Public Use
  Company Number: US-PFIZER INC-2009312087

PATIENT

DRUGS (3)
  1. DILANTIN-125 [Suspect]
     Dosage: UNK
  2. CENTRUM SILVER ULTRA WOMEN'S [Suspect]
     Dosage: UNK
  3. VITAMIN D [Suspect]
     Dosage: UNK

REACTIONS (1)
  - RASH [None]
